FAERS Safety Report 24429496 (Version 1)
Quarter: 2024Q4

REPORT INFORMATION
  Report Type: Spontaneous
  Country: US (occurrence: US)
  Receive Date: 20241012
  Receipt Date: 20241012
  Transmission Date: 20250114
  Serious: Yes (Life-Threatening, Hospitalization, Other)
  Sender: CELLTRION
  Company Number: US-CELLTRION INC.-2024US013057

PATIENT

DRUGS (7)
  1. INFLIXIMAB [Suspect]
     Active Substance: INFLIXIMAB
     Indication: Neurosarcoidosis
     Dosage: EVERY 6 WEEKS
  2. INFLIXIMAB [Suspect]
     Active Substance: INFLIXIMAB
     Dosage: EVERY 6 WEEKS
  3. METHYLPREDNISOLONE [Suspect]
     Active Substance: METHYLPREDNISOLONE
     Indication: Product used for unknown indication
     Dosage: EMPIRIC COURSE OF 1,000 MG DAILY INTRAVENOUS  FOR 3 DAYS
     Route: 042
  4. PREDNISONE [Suspect]
     Active Substance: PREDNISONE
     Indication: Neurosarcoidosis
     Dosage: 60 MG DAILY
     Route: 048
  5. PREDNISONE [Suspect]
     Active Substance: PREDNISONE
     Dosage: TAPERING BY 5 MG EVERY 4 WEEKS
     Route: 048
  6. EVEROLIMUS [Suspect]
     Active Substance: EVEROLIMUS
     Indication: Neurosarcoidosis
     Dosage: UNK ( (GOAL 3-5)
  7. TACROLIMUS [Suspect]
     Active Substance: TACROLIMUS
     Indication: Neurosarcoidosis
     Dosage: (GOAL 4-6)

REACTIONS (2)
  - Septic shock [Unknown]
  - Intentional product use issue [Unknown]
